FAERS Safety Report 6248997-1 (Version None)
Quarter: 2009Q2

REPORT INFORMATION
  Report Type: 
  Country: None (occurrence: None)
  Receive Date: 20090629
  Receipt Date: 20090619
  Transmission Date: 20091009
  Serious: Yes (Death)
  Sender: FDA-Public Use
  Company Number: PE-PFIZER INC-2009228037

PATIENT
  Age: 90 Year

DRUGS (2)
  1. NORVASC [Suspect]
     Indication: HYPERTENSION
     Dosage: 10 MG, UNK
     Route: 048
     Dates: start: 20080901, end: 20090606
  2. LANSOPRAZOLE [Concomitant]
     Dosage: UNK
     Dates: start: 20080101

REACTIONS (1)
  - PNEUMONIA [None]
